FAERS Safety Report 24849527 (Version 1)
Quarter: 2025Q1

REPORT INFORMATION
  Report Type: Spontaneous
  Country: FR (occurrence: FR)
  Receive Date: 20250116
  Receipt Date: 20250116
  Transmission Date: 20250409
  Serious: Yes (Life-Threatening)
  Sender: ACCORD
  Company Number: None

PATIENT
  Age: 78 Year
  Sex: Female
  Weight: 49.4 kg

DRUGS (2)
  1. FUROSEMIDE [Interacting]
     Active Substance: FUROSEMIDE
     Indication: Hypertension
     Dates: end: 20241119
  2. SPIRONOLACTONE [Interacting]
     Active Substance: SPIRONOLACTONE
     Indication: Hypertension
     Dates: end: 20241119

REACTIONS (2)
  - Acute kidney injury [Recovering/Resolving]
  - Drug interaction [Recovered/Resolved]

NARRATIVE: CASE EVENT DATE: 20241119
